FAERS Safety Report 6963678-4 (Version None)
Quarter: 2010Q3

REPORT INFORMATION
  Report Type: 
  Country: None (occurrence: None)
  Receive Date: 20100830
  Receipt Date: 20100810
  Transmission Date: 20110219
  Serious: Yes (Other)
  Sender: FDA-Public Use
  Company Number: FKO201000328

PATIENT
  Age: 13 Year
  Sex: Male

DRUGS (8)
  1. CYCLOPHOSPHAMIDE [Suspect]
     Indication: ACUTE LYMPHOCYTIC LEUKAEMIA
     Dosage: (1000 MG/M2, DAY2 INTRAVENOUS
     Route: 042
  2. CYTARABINE [Suspect]
     Indication: ACUTE LYMPHOCYTIC LEUKAEMIA
     Dosage: (75 MG/M2, DAYS 3-6 + DAYS 10-13) INTRAVENOUS; (30 MG) INTRATHECAL
  3. METHOTREXATE [Suspect]
     Indication: ACUTE LYMPHOCYTIC LEUKAEMIA
     Dosage: (12 MG) INTRATHECAL
     Route: 037
  4. THIOGUANINE (THIOGUANINE) (THIOGUANINE) [Concomitant]
  5. METHYLPREDNISOLONE [Concomitant]
  6. COTRIMOXAZOLE (BACTRIM /00086101/) (BACTRIM /00086101/) [Concomitant]
  7. ONDANSETRON [Concomitant]
  8. OMEPRAZOLE [Concomitant]

REACTIONS (8)
  - DYSARTHRIA [None]
  - HEMIPARESIS [None]
  - MONOPLEGIA [None]
  - OESOPHAGEAL DISORDER [None]
  - SENSORY LOSS [None]
  - STOMATITIS [None]
  - SWELLING FACE [None]
  - VIITH NERVE PARALYSIS [None]
